FAERS Safety Report 7694153-X (Version None)
Quarter: 2011Q3

REPORT INFORMATION
  Report Type: 
  Country: None (occurrence: None)
  Receive Date: 20110819
  Receipt Date: 20110810
  Transmission Date: 20111222
  Serious: Yes (Other)
  Sender: FDA-Public Use
  Company Number: GB-MPIJNJ-2011-00768

PATIENT

DRUGS (8)
  1. ACYCLOVIR [Concomitant]
  2. OMEPRAZOLE [Concomitant]
  3. ATENOLOL [Concomitant]
     Indication: HYPERTENSION
     Dosage: 25 MG, UNK
  4. SENNA                              /00142201/ [Concomitant]
     Indication: CONSTIPATION
  5. GABAPENTIN [Concomitant]
     Indication: NEURALGIA
     Dosage: 400 MG, UNK
  6. VELCADE [Suspect]
     Indication: MULTIPLE MYELOMA
     Dosage: 1.5 MG, UNK
     Route: 042
     Dates: start: 20110111, end: 20110419
  7. FLUCONAZOLE [Concomitant]
  8. MORPHINE [Concomitant]
     Indication: PAIN
     Dosage: 80 MG, UNK

REACTIONS (1)
  - CHOLECYSTITIS [None]
